FAERS Safety Report 18599097 (Version 1)
Quarter: 2020Q4

REPORT INFORMATION
  Report Type: Spontaneous
  Country: ES (occurrence: ES)
  Receive Date: 20201210
  Receipt Date: 20201210
  Transmission Date: 20210114
  Serious: Yes (Hospitalization)
  Sender: FDA-Public Use
  Company Number: ES-TEVA-2020-ES-1856125

PATIENT
  Age: 85 Year
  Sex: Female

DRUGS (1)
  1. NAPROXENO (2002A) [Suspect]
     Active Substance: NAPROXEN
     Dates: start: 202011, end: 202011

REACTIONS (2)
  - Gastric ulcer [Unknown]
  - Gastrointestinal ulcer haemorrhage [Unknown]

NARRATIVE: CASE EVENT DATE: 20201118
